FAERS Safety Report 6048201-3 (Version None)
Quarter: 2009Q1

REPORT INFORMATION
  Report Type: 
  Country: None (occurrence: None)
  Receive Date: 20090123
  Receipt Date: 20090116
  Transmission Date: 20090719
  Serious: Yes (Other)
  Sender: FDA-Public Use
  Company Number: US-ROCHE-608864

PATIENT
  Sex: Male

DRUGS (1)
  1. ROCEPHIN [Suspect]
     Indication: LYME DISEASE
     Route: 065

REACTIONS (2)
  - CHOLELITHIASIS [None]
  - HEPATIC STEATOSIS [None]
